FAERS Safety Report 6602953-X (Version None)
Quarter: 2010Q1

REPORT INFORMATION
  Report Type: 
  Country: None (occurrence: None)
  Receive Date: 20100226
  Receipt Date: 20100217
  Transmission Date: 20100710
  Serious: Yes (Other)
  Sender: FDA-Public Use
  Company Number: GB-JNJFOC-20090604402

PATIENT
  Sex: Female

DRUGS (2)
  1. HALOPERIDOL DECANOATE [Suspect]
     Indication: BIPOLAR DISORDER
     Route: 030
  2. HALOPERIDOL DECANOATE [Suspect]
     Indication: BIPOLAR I DISORDER
     Route: 030

REACTIONS (2)
  - ABORTION SPONTANEOUS [None]
  - DRUG EXPOSURE DURING PREGNANCY [None]
